FAERS Safety Report 20925129 (Version 2)
Quarter: 2022Q3

REPORT INFORMATION
  Report Type: Report from Study
  Country: CR (occurrence: CR)
  Receive Date: 20220607
  Receipt Date: 20220913
  Transmission Date: 20221027
  Serious: Yes (Other)
  Sender: FDA-Public Use
  Company Number: CR-NOVARTISPH-NVSC2022CR127080

PATIENT
  Sex: Female

DRUGS (1)
  1. SECUKINUMAB [Suspect]
     Active Substance: SECUKINUMAB
     Indication: Ankylosing spondylitis
     Dosage: 150 MG, QMO
     Route: 058
     Dates: start: 20211110

REACTIONS (9)
  - Facial paralysis [Unknown]
  - Neuralgia [Unknown]
  - Headache [Recovering/Resolving]
  - Ear pain [Unknown]
  - Taste disorder [Unknown]
  - Facial discomfort [Unknown]
  - Pain in jaw [Unknown]
  - Neck pain [Unknown]
  - Limb discomfort [Unknown]
